FAERS Safety Report 9451601 (Version 1)
Quarter: 2013Q3

REPORT INFORMATION
  Report Type: Spontaneous
  Country: US (occurrence: US)
  Receive Date: 20130811
  Receipt Date: 20130811
  Transmission Date: 20140515
  Serious: Yes (Death, Other)
  Sender: FDA-Public Use
  Company Number: US-CUBIST PHARMACEUTICALS, INC.-2013CBST000317

PATIENT
  Sex: 0

DRUGS (2)
  1. CUBICIN [Suspect]
     Indication: DEVICE RELATED INFECTION
     Dosage: UNK UNK, UNK
  2. CUBICIN [Suspect]
     Indication: OFF LABEL USE

REACTIONS (4)
  - Death [Fatal]
  - Acute respiratory distress syndrome [Unknown]
  - Renal failure [Unknown]
  - Eosinophilic pneumonia [Unknown]
